FAERS Safety Report 11968815 (Version 1)
Quarter: 2016Q1

REPORT INFORMATION
  Report Type: Spontaneous
  Country: US (occurrence: None)
  Receive Date: 20160126
  Receipt Date: 20160126
  Transmission Date: 20160526
  Serious: No
  Sender: FDA-Public Use
  Company Number: None

PATIENT
  Age: 58 Year
  Sex: Female

DRUGS (19)
  1. VITAMIN C [Concomitant]
     Active Substance: ASCORBIC ACID
  2. OMEPRAZOLE. [Concomitant]
     Active Substance: OMEPRAZOLE
  3. VITAMIN B [Concomitant]
     Active Substance: VITAMIN B
  4. HARVONI [Suspect]
     Active Substance: LEDIPASVIR\SOFOSBUVIR
     Indication: HEPATITIS C
     Dosage: HARVONI 90-400MG DAILY PO
     Route: 048
     Dates: start: 20151222
  5. LEVOFLOXACIN. [Concomitant]
     Active Substance: LEVOFLOXACIN
  6. MONTELUKAST [Concomitant]
     Active Substance: MONTELUKAST SODIUM
  7. PROAIR HFA [Concomitant]
     Active Substance: ALBUTEROL SULFATE
  8. ESTRACE [Concomitant]
     Active Substance: ESTRADIOL
  9. PROMETHAZINE [Concomitant]
     Active Substance: PROMETHAZINE\PROMETHAZINE HYDROCHLORIDE
  10. RECLAST [Concomitant]
     Active Substance: ZOLEDRONIC ACID
  11. VERAMYST [Concomitant]
     Active Substance: FLUTICASONE FUROATE
  12. ZYRTEC [Concomitant]
     Active Substance: CETIRIZINE HYDROCHLORIDE
  13. AIRBORNE [Concomitant]
     Active Substance: HERBALS\MINERALS\VITAMINS
  14. ALBUTEROL. [Concomitant]
     Active Substance: ALBUTEROL
  15. ATIVAN [Concomitant]
     Active Substance: LORAZEPAM
  16. CALTRATE +D [Concomitant]
  17. VITAMIN E [Concomitant]
     Active Substance: .ALPHA.-TOCOPHEROL
  18. ALPRAZOLAM. [Concomitant]
     Active Substance: ALPRAZOLAM
  19. VITAMIN D3 [Concomitant]
     Active Substance: CHOLECALCIFEROL

REACTIONS (2)
  - Anxiety [None]
  - Fatigue [None]

NARRATIVE: CASE EVENT DATE: 20151222
